FAERS Safety Report 16872223 (Version 2)
Quarter: 2019Q4

REPORT INFORMATION
  Report Type: Spontaneous
  Country: BG (occurrence: BG)
  Receive Date: 20191001
  Receipt Date: 20191016
  Transmission Date: 20200122
  Serious: Yes (Other)
  Sender: FDA-Public Use
  Company Number: PHHY2019BG225415

PATIENT
  Age: 62 Year
  Sex: Female

DRUGS (2)
  1. AZOPT [Suspect]
     Active Substance: BRINZOLAMIDE
     Indication: GLAUCOMA
     Dosage: UNK
     Route: 065
  2. FOTIL [Concomitant]
     Indication: PRODUCT USED FOR UNKNOWN INDICATION
     Dosage: UNK
     Route: 065

REACTIONS (2)
  - Iris atrophy [Unknown]
  - Intraocular pressure increased [Recovered/Resolved]
